FAERS Safety Report 22389837 (Version 1)
Quarter: 2023Q2

REPORT INFORMATION
  Report Type: Spontaneous
  Country: RU (occurrence: RU)
  Receive Date: 20230531
  Receipt Date: 20230531
  Transmission Date: 20230721
  Serious: Yes (Other)
  Sender: FDA-Public Use
  Company Number: RU-ABBOTT-2023A-1364425

PATIENT
  Age: 14 Year
  Sex: Female
  Weight: 53 kg

DRUGS (1)
  1. PANCREATIN [Suspect]
     Active Substance: PANCRELIPASE
     Indication: Cystic fibrosis
     Route: 048
     Dates: start: 20200610, end: 20200620

REACTIONS (4)
  - Drug ineffective [Not Recovered/Not Resolved]
  - Abnormal faeces [Not Recovered/Not Resolved]
  - Decreased appetite [Not Recovered/Not Resolved]
  - Weight decreased [Not Recovered/Not Resolved]

NARRATIVE: CASE EVENT DATE: 20200620
